FAERS Safety Report 12837410 (Version 1)
Quarter: 2016Q4

REPORT INFORMATION
  Report Type: Other
  Country: GB (occurrence: GR)
  Receive Date: 20161011
  Receipt Date: 20161011
  Transmission Date: 20170207
  Serious: Yes (Death, Hospitalization, Other)
  Sender: FDA-Public Use
  Company Number: GR-INTERNATIONAL MEDICATION SYSTEMS, LIMITED-1058241

PATIENT
  Age: 41 Year
  Sex: Male

DRUGS (8)
  1. MANNITOL. [Suspect]
     Active Substance: MANNITOL
  2. FLUDROCORTISONE ACETATE. [Concomitant]
     Active Substance: FLUDROCORTISONE ACETATE
  3. VANCOMYCIN HCL [Suspect]
     Active Substance: VANCOMYCIN HYDROCHLORIDE
  4. FUROSEMIDE. [Suspect]
     Active Substance: FUROSEMIDE
  5. CEFTRIAXONE. [Suspect]
     Active Substance: CEFTRIAXONE
  6. EPINEPHRINE. [Suspect]
     Active Substance: EPINEPHRINE
  7. HYDROCORTISONE. [Suspect]
     Active Substance: HYDROCORTISONE
  8. ACYCLOVIR. [Suspect]
     Active Substance: ACYCLOVIR

REACTIONS (3)
  - Death [Fatal]
  - Multiple organ dysfunction syndrome [Fatal]
  - Drug ineffective [None]
